FAERS Safety Report 16484343 (Version 1)
Quarter: 2019Q3

REPORT INFORMATION
  Report Type: Spontaneous
  Country: US (occurrence: US)
  Receive Date: 20190625
  Receipt Date: 20190625
  Transmission Date: 20191004
  Serious: Yes (Death)
  Sender: FDA-Public Use
  Company Number: None

PATIENT
  Age: 87 Year
  Sex: Male

DRUGS (11)
  1. WARFARIN [Concomitant]
     Active Substance: WARFARIN
  2. ENBREL [Suspect]
     Active Substance: ETANERCEPT
     Indication: RHEUMATOID ARTHRITIS
     Dosage: ?          OTHER FREQUENCY:ONCE WEEKLY;?
     Route: 058
     Dates: start: 20181209, end: 20190619
  3. TAMULOSIN [Concomitant]
     Active Substance: TAMSULOSIN
  4. CARVEDILOL. [Concomitant]
     Active Substance: CARVEDILOL
  5. METHOTREXATE. [Concomitant]
     Active Substance: METHOTREXATE
  6. TRAZODONE [Concomitant]
     Active Substance: TRAZODONE HYDROCHLORIDE
  7. ZALPLON [Concomitant]
  8. LATANOPROST. [Concomitant]
     Active Substance: LATANOPROST
  9. LOSARTAN. [Concomitant]
     Active Substance: LOSARTAN
  10. PREDNISONE. [Concomitant]
     Active Substance: PREDNISONE
  11. ALLOPURINOL. [Concomitant]
     Active Substance: ALLOPURINOL

REACTIONS (1)
  - Death [None]

NARRATIVE: CASE EVENT DATE: 20190619
